FAERS Safety Report 22321224 (Version 12)
Quarter: 2024Q4

REPORT INFORMATION
  Report Type: Spontaneous
  Country: BR (occurrence: BR)
  Receive Date: 20230515
  Receipt Date: 20241024
  Transmission Date: 20250114
  Serious: Yes (Other)
  Sender: ELI LILLY AND COMPANY
  Company Number: BR-ELI_LILLY_AND_COMPANY-BR202304008552

PATIENT
  Age: 78 Year
  Sex: Female

DRUGS (11)
  1. FORTEO [Suspect]
     Active Substance: TERIPARATIDE
     Indication: Osteoporosis
     Dosage: 20 UG, UNKNOWN
     Route: 058
     Dates: start: 20221026
  2. FORTEO [Suspect]
     Active Substance: TERIPARATIDE
     Indication: Osteoporosis
     Dosage: 20 UG, UNKNOWN
     Route: 058
     Dates: start: 20221026
  3. FORTEO [Suspect]
     Active Substance: TERIPARATIDE
     Dosage: 20 UG, UNKNOWN
     Route: 058
  4. FORTEO [Suspect]
     Active Substance: TERIPARATIDE
     Dosage: UNK, UNKNOWN
     Route: 065
  5. FORTEO [Suspect]
     Active Substance: TERIPARATIDE
     Dosage: UNK UNK, DAILY
     Route: 065
  6. FORTEO [Suspect]
     Active Substance: TERIPARATIDE
     Dosage: 20 UG, DAILY
     Route: 058
  7. BACTRIM [Suspect]
     Active Substance: SULFAMETHOXAZOLE\TRIMETHOPRIM
     Indication: Peripheral swelling
     Dosage: 1 DOSAGE FORM, DAILY
     Route: 065
  8. BACTRIM [Suspect]
     Active Substance: SULFAMETHOXAZOLE\TRIMETHOPRIM
     Indication: Limb injury
  9. BACTRIM [Suspect]
     Active Substance: SULFAMETHOXAZOLE\TRIMETHOPRIM
     Indication: Infection
  10. DIPYRONE [Suspect]
     Active Substance: DIPYRONE
     Indication: Product used for unknown indication
     Dosage: UNK, UNKNOWN
     Route: 065
  11. GABAPENTIN [Suspect]
     Active Substance: GABAPENTIN
     Indication: Product used for unknown indication
     Dosage: UNK, UNKNOWN
     Route: 065

REACTIONS (51)
  - Dementia Alzheimer^s type [Unknown]
  - Limb injury [Unknown]
  - Fractured coccyx [Unknown]
  - Memory impairment [Unknown]
  - Tendon rupture [Unknown]
  - Malaise [Unknown]
  - Knee deformity [Unknown]
  - Cartilage injury [Unknown]
  - Pain [Unknown]
  - Peripheral swelling [Unknown]
  - Limb injury [Unknown]
  - Arthralgia [Recovered/Resolved]
  - Pruritus [Not Recovered/Not Resolved]
  - Thermal burn [Not Recovered/Not Resolved]
  - Pyrexia [Unknown]
  - Burning sensation [Unknown]
  - Uterine leiomyoma [Unknown]
  - Sleep disorder due to a general medical condition [Unknown]
  - Infection [Unknown]
  - Injection site pain [Not Recovered/Not Resolved]
  - Pain in extremity [Recovered/Resolved]
  - Urinary tract disorder [Unknown]
  - Gait disturbance [Not Recovered/Not Resolved]
  - Incorrect product administration duration [Unknown]
  - Fall [Unknown]
  - Skin abrasion [Unknown]
  - Wound haemorrhage [Unknown]
  - Fall [Unknown]
  - Spinal fracture [Unknown]
  - Anaemia [Not Recovered/Not Resolved]
  - Swelling [Unknown]
  - Pruritus [Unknown]
  - Back pain [Not Recovered/Not Resolved]
  - Sciatica [Unknown]
  - Fracture [Unknown]
  - Limb mass [Unknown]
  - Coccydynia [Recovered/Resolved]
  - Hypoaesthesia [Unknown]
  - Gastritis [Not Recovered/Not Resolved]
  - Dysstasia [Unknown]
  - Injection site mass [Recovered/Resolved]
  - Pruritus [Unknown]
  - Pain in extremity [Recovered/Resolved]
  - Sinusitis [Unknown]
  - Throat irritation [Unknown]
  - Fall [Unknown]
  - Kyphosis [Unknown]
  - Coccydynia [Not Recovered/Not Resolved]
  - Arthralgia [Not Recovered/Not Resolved]
  - Hypersensitivity [Unknown]
  - Nausea [Unknown]

NARRATIVE: CASE EVENT DATE: 20241001
